FAERS Safety Report 6804297-X (Version None)
Quarter: 2010Q2

REPORT INFORMATION
  Report Type: 
  Country: None (occurrence: None)
  Receive Date: 20100628
  Receipt Date: 20070308
  Transmission Date: 20101027
  Serious: No
  Sender: FDA-Public Use
  Company Number: US-PFIZER INC-2007001577

PATIENT
  Sex: Female
  Weight: 78.02 kg

DRUGS (3)
  1. XALATAN [Suspect]
     Dates: start: 20040101
  2. COUMADIN [Concomitant]
  3. LIPITOR [Concomitant]

REACTIONS (2)
  - EYE PRURITUS [None]
  - OCULAR HYPERAEMIA [None]
